FAERS Safety Report 8787782 (Version 2)
Quarter: 2012Q4

REPORT INFORMATION
  Report Type: 
  Country: FR (occurrence: FR)
  Receive Date: 20120914
  Receipt Date: 20120914
  Transmission Date: 20130627
  Serious: Yes (Hospitalization)
  Sender: FDA-Public Use
  Company Number: FR-ABBOTT-12P-056-0970964-00

PATIENT
  Age: 19 None
  Sex: Male

DRUGS (3)
  1. ROWASA [Suspect]
     Indication: PROCTOCOLITIS
     Route: 048
     Dates: start: 20120723
  2. IMUREL [Suspect]
     Indication: PROCTOCOLITIS
     Route: 048
     Dates: start: 20120713, end: 20120724
  3. SOLUPRED [Concomitant]
     Indication: PRODUCT USED FOR UNKNOWN INDICATION

REACTIONS (2)
  - Pancreatitis acute [Recovering/Resolving]
  - Proctocolitis [Recovering/Resolving]
